FAERS Safety Report 17396708 (Version 1)
Quarter: 2020Q1

REPORT INFORMATION
  Report Type: Spontaneous
  Country: US (occurrence: US)
  Receive Date: 20200124
  Receipt Date: 20200124
  Transmission Date: 20200409
  Serious: Yes (Death)
  Sender: FDA-Public Use
  Company Number: None

PATIENT
  Age: 78 Year
  Sex: Male
  Weight: 99.5 kg

DRUGS (1)
  1. VANCOMYCIN HYDROCHLORIDE 500MG X 2 [Suspect]
     Active Substance: VANCOMYCIN HYDROCHLORIDE
     Indication: BODY TEMPERATURE INCREASED
     Dosage: ?          OTHER ROUTE:IV INFUSION?
     Dates: start: 20190124

REACTIONS (1)
  - Unresponsive to stimuli [None]

NARRATIVE: CASE EVENT DATE: 20190124
